FAERS Safety Report 4369000-4 (Version None)
Quarter: 2004Q2

REPORT INFORMATION
  Report Type: 
  Country: None (occurrence: None)
  Receive Date: 20040525
  Receipt Date: 20040510
  Transmission Date: 20050107
  Serious: Yes (Hospitalization)
  Sender: FDA-Public Use
  Company Number: 002#8#2004-00115

PATIENT
  Age: 52 Year
  Sex: Female

DRUGS (12)
  1. METOCLOPRAMIDE HCL [Suspect]
     Indication: NAUSEA
     Dosage: 10 MG, 4 IN 1 D, ORAL
     Route: 048
     Dates: start: 20021227, end: 20030226
  2. METOCLOPRAMIDE HCL [Suspect]
     Indication: VOMITING
     Dosage: 10 MG, 4 IN 1 D, ORAL
     Route: 048
     Dates: start: 20021227, end: 20030226
  3. TACROLIMUS [Suspect]
     Indication: IMMUNOSUPPRESSION
     Dosage: ORAL
     Route: 048
  4. URSODIOL [Concomitant]
  5. LEVOFLOXACIN [Concomitant]
  6. METRONIDAZOLE [Concomitant]
  7. RANITIDINE [Concomitant]
  8. OMEPRAZOLE [Concomitant]
  9. PANTOPRAZOLE [Concomitant]
  10. KETOCONAZOLE [Concomitant]
  11. SIROLIMUS [Concomitant]
  12. MYCOPHENOLATE-MOFETIL [Concomitant]

REACTIONS (17)
  - ASTHENIA [None]
  - DIARRHOEA [None]
  - DRUG INTERACTION [None]
  - DRUG LEVEL BELOW THERAPEUTIC [None]
  - DRUG TOXICITY [None]
  - GASTRIC HYPOMOTILITY [None]
  - HEADACHE [None]
  - HEPATIC ENZYME INCREASED [None]
  - LIVER TRANSPLANT REJECTION [None]
  - NAUSEA [None]
  - NEPHROPATHY TOXIC [None]
  - PAIN IN EXTREMITY [None]
  - PYREXIA [None]
  - RENAL FAILURE ACUTE [None]
  - RENAL TUBULAR NECROSIS [None]
  - TREMOR [None]
  - VOMITING [None]
